FAERS Safety Report 9274857 (Version 1)
Quarter: 2013Q2

REPORT INFORMATION
  Report Type: Spontaneous
  Country: BR (occurrence: None)
  Receive Date: 20130429
  Receipt Date: 20130429
  Transmission Date: 20140414
  Serious: Yes (Other)
  Sender: FDA-Public Use
  Company Number: DSU-2013-03053

PATIENT
  Age: 80 Year
  Sex: Male

DRUGS (1)
  1. OLMETEC [Suspect]
     Indication: BLOOD PRESSURE
     Route: 048
     Dates: start: 20130219

REACTIONS (1)
  - Accident [None]
